FAERS Safety Report 8426888-5 (Version None)
Quarter: 2012Q2

REPORT INFORMATION
  Report Type: 
  Country: None (occurrence: None)
  Receive Date: 20120323
  Receipt Date: 20110426
  Transmission Date: 20120825
  Serious: Yes (Other)
  Sender: FDA-Public Use
  Company Number: 163-21880-11043568

PATIENT
  Age: 65 Year
  Sex: Male
  Weight: 117.4816 kg

DRUGS (9)
  1. CARVEDILOL [Concomitant]
  2. SIMVASTATIN [Concomitant]
  3. ALLOPURINOL [Concomitant]
  4. LANTUS [Concomitant]
  5. LENALIDOMIDE [Suspect]
     Indication: MULTIPLE MYELOMA
     Dosage: 5 MG, QD, PO
     Route: 048
     Dates: start: 20100601, end: 20101101
  6. AMLODIPINE BESYLATE [Concomitant]
  7. KLOR-CON [Concomitant]
  8. CITALOPRAM [Concomitant]
  9. ASPIRIN [Concomitant]

REACTIONS (1)
  - CEREBROVASCULAR ACCIDENT [None]
